FAERS Safety Report 17963775 (Version 1)
Quarter: 2020Q2

REPORT INFORMATION
  Report Type: Report from Study
  Country: US (occurrence: US)
  Receive Date: 20200630
  Receipt Date: 20200630
  Transmission Date: 20200714
  Serious: Yes (Other)
  Sender: FDA-Public Use
  Company Number: US-BAYER-2020-125752

PATIENT
  Age: 49 Year
  Sex: Male

DRUGS (2)
  1. XELODA [Concomitant]
     Active Substance: CAPECITABINE
     Dosage: UNK
  2. STIVARGA [Suspect]
     Active Substance: REGORAFENIB
     Indication: COLON CANCER
     Dosage: 160 MG DAILY, 21 DAYS
     Route: 048
     Dates: start: 202006

REACTIONS (1)
  - Spinal fracture [Unknown]
